FAERS Safety Report 9769593 (Version 2)
Quarter: 2014Q3

REPORT INFORMATION
  Report Type: Spontaneous
  Country: US (occurrence: US)
  Receive Date: 20131218
  Receipt Date: 20140730
  Transmission Date: 20150326
  Serious: Yes (Hospitalization)
  Sender: FDA-Public Use
  Company Number: US-SHIRE-ALL1-2013-08637

PATIENT
  Sex: Female
  Weight: 77.98 kg

DRUGS (1)
  1. PENTASA [Suspect]
     Active Substance: MESALAMINE
     Indication: CROHN^S DISEASE
     Dosage: UNK UNK (16 PILLS), OTHER (A DAY)
     Route: 048
     Dates: end: 201003

REACTIONS (3)
  - Off label use [Recovered/Resolved]
  - Malaise [Unknown]
  - Intestinal obstruction [Unknown]

NARRATIVE: CASE EVENT DATE: 2010
